FAERS Safety Report 14966339 (Version 1)
Quarter: 2018Q2

REPORT INFORMATION
  Report Type: Spontaneous
  Country: NO (occurrence: NO)
  Receive Date: 20180604
  Receipt Date: 20180604
  Transmission Date: 20180711
  Serious: Yes (Other)
  Sender: FDA-Public Use
  Company Number: NO-ABBVIE-18K-122-2372624-00

PATIENT
  Sex: Female

DRUGS (1)
  1. VENCLYXTO [Suspect]
     Active Substance: VENETOCLAX
     Indication: CHRONIC LYMPHOCYTIC LEUKAEMIA
     Dosage: RAMP UP DOSING. NEXT RAMP UP DOSE 08 JUN 2018
     Route: 048

REACTIONS (10)
  - Haemoglobin decreased [Unknown]
  - Neutropenia [Unknown]
  - Pain [Unknown]
  - Vulval cellulitis [Unknown]
  - Pyrexia [Unknown]
  - Fatigue [Unknown]
  - Acute kidney injury [Unknown]
  - Cellulitis [Unknown]
  - Rash [Unknown]
  - Laziness [Unknown]
